FAERS Safety Report 14577746 (Version 1)
Quarter: 2018Q1

REPORT INFORMATION
  Report Type: Spontaneous
  Country: MX (occurrence: MX)
  Receive Date: 20180226
  Receipt Date: 20180226
  Transmission Date: 20180509
  Serious: Yes (Other)
  Sender: FDA-Public Use
  Company Number: None

PATIENT
  Age: 53 Year
  Sex: Male
  Weight: 88 kg

DRUGS (3)
  1. POWDER BATH COLIDE [Concomitant]
  2. NOVAGE/DAY SHIELD SPF30, ADVANCED SKIN PROTECTO R [Suspect]
     Active Substance: TITANIUM DIOXIDE
     Indication: THERAPEUTIC SKIN CARE TOPICAL
     Dosage: ?          QUANTITY:1 PORCION;?
     Route: 061
     Dates: start: 20171101, end: 20171107
  3. CLIOQUINOL (CREAM) [Concomitant]

REACTIONS (4)
  - Application site discolouration [None]
  - Dermatitis [None]
  - Application site rash [None]
  - Application site pruritus [None]

NARRATIVE: CASE EVENT DATE: 20171127
